FAERS Safety Report 8100602-5 (Version None)
Quarter: 2012Q1

REPORT INFORMATION
  Report Type: 
  Country: None (occurrence: None)
  Receive Date: 20120129
  Receipt Date: 20111125
  Transmission Date: 20120608
  Serious: No
  Sender: FDA-Public Use
  Company Number: US-ABBOTT-11P-163-0878031-00

PATIENT
  Age: 29 Year
  Sex: Male

DRUGS (3)
  1. ZOLOFT [Concomitant]
     Indication: ANXIETY
  2. HUMIRA [Suspect]
     Indication: PSORIATIC ARTHROPATHY
     Dates: end: 20111125
  3. LIPITOR [Concomitant]
     Indication: BLOOD CHOLESTEROL
     Dosage: ^WHATEVER THE LOWEST DOSE IS^

REACTIONS (1)
  - SINUSITIS [None]
